FAERS Safety Report 22833027 (Version 2)
Quarter: 2023Q4

REPORT INFORMATION
  Report Type: Spontaneous
  Country: US (occurrence: US)
  Receive Date: 20230817
  Receipt Date: 20231020
  Transmission Date: 20240110
  Serious: No
  Sender: FDA-Public Use
  Company Number: US-PFIZER INC-PV202300140534

PATIENT
  Age: 67 Year
  Sex: Female

DRUGS (2)
  1. BRAFTOVI [Suspect]
     Active Substance: ENCORAFENIB
     Dosage: UNK
     Dates: start: 20230806
  2. MEKTOVI [Suspect]
     Active Substance: BINIMETINIB
     Dosage: UNK
     Dates: start: 20230806

REACTIONS (14)
  - Diarrhoea [Unknown]
  - Pyrexia [Unknown]
  - Feeling abnormal [Unknown]
  - Fatigue [Unknown]
  - Dyspnoea exertional [Unknown]
  - Vomiting [Unknown]
  - Chills [Unknown]
  - Pallor [Unknown]
  - Peripheral swelling [Not Recovered/Not Resolved]
  - Erythema [Unknown]
  - Blister [Unknown]
  - Emotional distress [Unknown]
  - Musculoskeletal disorder [Unknown]
  - Mobility decreased [Unknown]
